FAERS Safety Report 14198244 (Version 1)
Quarter: 2017Q4

REPORT INFORMATION
  Report Type: Spontaneous
  Country: US (occurrence: US)
  Receive Date: 20171117
  Receipt Date: 20171117
  Transmission Date: 20180321
  Serious: No
  Sender: FDA-Public Use
  Company Number: US-ASTRAZENECA-2017SF08729

PATIENT
  Age: 83 Year
  Sex: Female
  Weight: 74.4 kg

DRUGS (9)
  1. PREDNISONE. [Concomitant]
     Active Substance: PREDNISONE
     Indication: RASH
  2. SYNTHROID [Concomitant]
     Active Substance: LEVOTHYROXINE SODIUM
     Indication: THYROID DISORDER
     Dosage: 112.0UG UNKNOWN
  3. PROAIR HFA [Concomitant]
     Active Substance: ALBUTEROL SULFATE
     Indication: INHALATION THERAPY
     Dosage: FREQUENCY AS REQUIRED
  4. XANAX [Concomitant]
     Active Substance: ALPRAZOLAM
     Dosage: FREQUENCY AS REQUIRED
  5. SYMBICORT [Suspect]
     Active Substance: BUDESONIDE\FORMOTEROL FUMARATE DIHYDRATE
     Indication: CHRONIC OBSTRUCTIVE PULMONARY DISEASE
     Dosage: 160/4.5 MCG (TWO INHALATIONS), TWICE A DAY
     Route: 055
     Dates: start: 201707
  6. AZITHROMYCIN ANHYDROUS. [Concomitant]
     Active Substance: AZITHROMYCIN ANHYDROUS
  7. BENADRYL [Concomitant]
     Active Substance: DIPHENHYDRAMINE HYDROCHLORIDE
     Indication: RASH
  8. LORATADINE. [Concomitant]
     Active Substance: LORATADINE
     Indication: RASH
  9. SYMBICORT [Suspect]
     Active Substance: BUDESONIDE\FORMOTEROL FUMARATE DIHYDRATE
     Indication: EMPHYSEMA
     Dosage: 160/4.5 MCG (TWO INHALATIONS), TWICE A DAY
     Route: 055
     Dates: start: 201707

REACTIONS (11)
  - Nasopharyngitis [Recovered/Resolved]
  - Overweight [Not Recovered/Not Resolved]
  - Bronchitis [Recovered/Resolved]
  - Drug tolerance decreased [Unknown]
  - Rash pruritic [Not Recovered/Not Resolved]
  - Vulvovaginal rash [Recovered/Resolved]
  - Herpes zoster [Recovered/Resolved]
  - Fungal infection [Recovered/Resolved]
  - Circumstance or information capable of leading to device use error [Unknown]
  - Body height decreased [Not Recovered/Not Resolved]
  - Rash erythematous [Not Recovered/Not Resolved]

NARRATIVE: CASE EVENT DATE: 2017
